FAERS Safety Report 20911680 (Version 1)
Quarter: 2022Q2

REPORT INFORMATION
  Report Type: Spontaneous
  Country: US (occurrence: US)
  Receive Date: 20220603
  Receipt Date: 20220603
  Transmission Date: 20220721
  Serious: No
  Sender: FDA-Public Use
  Company Number: US-BRISTOL-MYERS SQUIBB COMPANY-2022-043136

PATIENT
  Age: 69 Year
  Sex: Female

DRUGS (1)
  1. REVLIMID [Suspect]
     Active Substance: LENALIDOMIDE
     Indication: Monoclonal gammopathy
     Dosage: D1-21 EVERY 28 DAYS
     Route: 048
     Dates: start: 20220425

REACTIONS (4)
  - Headache [Unknown]
  - Feeling abnormal [Unknown]
  - Bone pain [Unknown]
  - Intentional product use issue [Unknown]
